FAERS Safety Report 20430365 (Version 1)
Quarter: 2022Q1

REPORT INFORMATION
  Report Type: Report from Study
  Country: FR (occurrence: FR)
  Receive Date: 20220204
  Receipt Date: 20220204
  Transmission Date: 20220423
  Serious: Yes (Hospitalization, Other)
  Sender: FDA-Public Use
  Company Number: FR-SERVIER-S20006990

PATIENT

DRUGS (8)
  1. PEGASPARGASE [Suspect]
     Active Substance: PEGASPARGASE
     Indication: Acute lymphocytic leukaemia
     Dosage: 1450 IU, D15, D43
     Route: 042
     Dates: start: 20200515, end: 20200617
  2. VINCRISTINE SULFATE [Suspect]
     Active Substance: VINCRISTINE SULFATE
     Indication: Acute lymphocytic leukaemia
     Dosage: 0,9 MG D15, D22, D43, D50
     Route: 042
     Dates: start: 20200515, end: 20200624
  3. CYTARABINE [Suspect]
     Active Substance: CYTARABINE
     Indication: Acute lymphocytic leukaemia
     Dosage: 44 MG D3 TO D6, D10 TO D13,
     Route: 042
     Dates: start: 20200503, end: 20200615
  4. CYTARABINE [Suspect]
     Active Substance: CYTARABINE
     Dosage: 30 MG D3, D31
     Route: 037
     Dates: start: 20200503, end: 20200605
  5. CYCLOPHOSPHAMIDE [Suspect]
     Active Substance: CYCLOPHOSPHAMIDE
     Indication: Acute lymphocytic leukaemia
     Dosage: 580 MG D1, D29
     Route: 042
     Dates: start: 20200501, end: 20200603
  6. MERCAPTOPURINE [Suspect]
     Active Substance: MERCAPTOPURINE
     Indication: Acute lymphocytic leukaemia
     Dosage: 34 MG D1 TO D14, D29, D42
     Route: 048
     Dates: start: 20200501, end: 20200616
  7. TN UNSPECIFIED [Concomitant]
     Indication: Acute lymphocytic leukaemia
     Dosage: 12 MG D3, D31
     Route: 037
     Dates: start: 20200503, end: 20200605
  8. TN UNSPECIFIED [Concomitant]
     Indication: Acute lymphocytic leukaemia
     Dosage: 15 MG D3, D31
     Route: 037
     Dates: start: 20200503, end: 20200605

REACTIONS (2)
  - Hypokalaemia [Recovered/Resolved]
  - Pneumonia [Recovered/Resolved]

NARRATIVE: CASE EVENT DATE: 20200627
